FAERS Safety Report 24664385 (Version 2)
Quarter: 2025Q1

REPORT INFORMATION
  Report Type: Spontaneous
  Country: US (occurrence: US)
  Receive Date: 20241126
  Receipt Date: 20250117
  Transmission Date: 20250408
  Serious: Yes (Other)
  Sender: AUROBINDO
  Company Number: US-AUROBINDO-AUR-APL-2024-056962

PATIENT
  Age: 63 Year
  Sex: Female

DRUGS (1)
  1. LATANOPROST [Suspect]
     Active Substance: LATANOPROST
     Indication: Ocular hypertension
     Dosage: ONCE A DAY (AT BEDTIME IN THE LEFT EYE)
     Route: 061

REACTIONS (2)
  - Macular hole [Recovered/Resolved]
  - Disease recurrence [Recovered/Resolved]
